FAERS Safety Report 8590715-6 (Version None)
Quarter: 2012Q3

REPORT INFORMATION
  Report Type: 
  Country: None (occurrence: None)
  Receive Date: 20120731
  Receipt Date: 20120716
  Transmission Date: 20120928
  Serious: Yes (Death)
  Sender: FDA-Public Use
  Company Number: DSM-2012-00714

PATIENT
  Age: 79 Year
  Sex: Male

DRUGS (6)
  1. AXELER (OLMESARTAN MEDOXOMIL, AMLODIPINE BESILATE) (TABLET) (OLMESARTA [Suspect]
     Indication: HYPERTENSION
     Dosage: 20/5 MG, ORAL
     Route: 048
     Dates: start: 20100101, end: 20120528
  2. DAFALGAN (PARACETAMOL) (PARACETAMOL) [Concomitant]
  3. NEXIUM [Concomitant]
  4. METFFORMIN HYDROCHLORIDE [Suspect]
     Indication: TYPE 2 DIABETES MELLITUS
     Dosage: 1000 MG (500 MG, 2 IN 1 D), ORAL
     Route: 048
     Dates: end: 20120528
  5. ADENURIC (FEBUXOSTAT) (FEBUXOSTAT) [Suspect]
     Indication: PRODUCT USED FOR UNKNOWN INDICATION
     Dosage: 80 MG, ORAL
     Route: 048
     Dates: end: 20120528
  6. BIPROFENID (KETOPENID (KETOPROFEN) (KETOPROFEN) [Concomitant]

REACTIONS (8)
  - PULMONARY FIBROSIS [None]
  - INTERSTITIAL LUNG DISEASE [None]
  - ACUTE RESPIRATORY DISTRESS SYNDROME [None]
  - GENERAL PHYSICAL HEALTH DETERIORATION [None]
  - CARDIAC FAILURE [None]
  - PSEUDOMONAS INFECTION [None]
  - BLOOD PRESSURE DIASTOLIC DECREASED [None]
  - FLUID OVERLOAD [None]
